FAERS Safety Report 4892203-7 (Version None)
Quarter: 2006Q1

REPORT INFORMATION
  Report Type: 
  Country: None (occurrence: None)
  Receive Date: 20060125
  Receipt Date: 20060125
  Transmission Date: 20060701
  Serious: No
  Sender: FDA-Public Use
  Company Number: None

PATIENT
  Age: 43 Year
  Sex: Female
  Weight: 78.4723 kg

DRUGS (2)
  1. EFFEXOR [Suspect]
     Indication: HOT FLUSH
     Dosage: 75 MG 1 TIME EACH DAY PO
     Route: 048
     Dates: start: 20030501, end: 20060116
  2. EFFEXOR [Suspect]
     Indication: MENOPAUSAL SYMPTOMS
     Dosage: 75 MG 1 TIME EACH DAY PO
     Route: 048
     Dates: start: 20030501, end: 20060116

REACTIONS (9)
  - ABNORMAL DREAMS [None]
  - AGGRESSION [None]
  - CHILLS [None]
  - CRYING [None]
  - DISTURBANCE IN ATTENTION [None]
  - DRUG WITHDRAWAL SYNDROME [None]
  - HOT FLUSH [None]
  - MEMORY IMPAIRMENT [None]
  - RESTLESSNESS [None]
